FAERS Safety Report 12626493 (Version 3)
Quarter: 2016Q3

REPORT INFORMATION
  Report Type: Spontaneous
  Country: US (occurrence: US)
  Receive Date: 20160805
  Receipt Date: 20160908
  Transmission Date: 20161109
  Serious: No
  Sender: FDA-Public Use
  Company Number: US-PFIZER INC-2016370805

PATIENT
  Age: 56 Year
  Sex: Male

DRUGS (1)
  1. SUTENT [Suspect]
     Active Substance: SUNITINIB MALATE
     Indication: RENAL CANCER
     Dosage: 50 MG, CYCLIC (ONE CAPSULE ONE TIME DAILY ON DAYS 1- 28 OF EVERY 42 DAYS)
     Route: 048
     Dates: start: 20141001, end: 20160727

REACTIONS (2)
  - Renal cancer [Unknown]
  - Disease progression [Unknown]
